FAERS Safety Report 8896723 (Version 1)
Quarter: 2012Q4

REPORT INFORMATION
  Report Type: Spontaneous
  Country: JP (occurrence: None)
  Receive Date: 20121101
  Receipt Date: 20121101
  Transmission Date: 20130627
  Serious: Yes (Hospitalization)
  Sender: FDA-Public Use
  Company Number: SAN_00512_2012

PATIENT
  Age: 89 Year
  Sex: Male

DRUGS (8)
  1. METFORMIN (METFORMIN) [Suspect]
     Indication: TYPE 2 DIABETES MELLITUS
     Dosage: (500  mg/day)
  2. GLIMEPIRIDE [Suspect]
     Dosage: (4  mg/day)
  3. ASPIRIN [Concomitant]
  4. OMEPRAZOLE [Concomitant]
  5. ALLOPURINOL [Concomitant]
  6. PRAVASTATIN SODIUM [Concomitant]
  7. VALSARTAN [Concomitant]
  8. NAFTOPIDIL [Concomitant]

REACTIONS (6)
  - Hypoglycaemia [None]
  - Glycosylated haemoglobin increased [None]
  - Dysarthria [None]
  - Muscular weakness [None]
  - Blood pressure decreased [None]
  - Cerebral infarction [None]
